FAERS Safety Report 23704231 (Version 1)
Quarter: 2024Q2

REPORT INFORMATION
  Report Type: Report from Study
  Country: US (occurrence: US)
  Receive Date: 20240404
  Receipt Date: 20240404
  Transmission Date: 20240716
  Serious: No
  Sender: FDA-Public Use
  Company Number: US-AstraZeneca-CH-00596098A

PATIENT
  Sex: Female

DRUGS (1)
  1. SOLIRIS [Suspect]
     Active Substance: ECULIZUMAB
     Indication: Neuromyelitis optica spectrum disorder
     Dosage: UNK, QW
     Route: 042

REACTIONS (4)
  - Limb discomfort [Recovering/Resolving]
  - Blood pressure increased [Recovering/Resolving]
  - Sensitive skin [Recovering/Resolving]
  - Nasopharyngitis [Recovering/Resolving]
